FAERS Safety Report 7127944-4 (Version None)
Quarter: 2010Q4

REPORT INFORMATION
  Report Type: 
  Country: None (occurrence: None)
  Receive Date: 20101112
  Receipt Date: 20101026
  Transmission Date: 20110411
  Serious: Yes (Death)
  Sender: FDA-Public Use
  Company Number: KV201000335

PATIENT
  Age: 42 Year
  Sex: Female

DRUGS (5)
  1. PREDNISOLONE [Suspect]
     Indication: CHEMOTHERAPY
  2. BLEOMYCIN SULFATE [Suspect]
     Indication: CHEMOTHERAPY
  3. CYCLOPHOSPHAMIDE [Suspect]
     Indication: CHEMOTHERAPY
  4. DOXORUBICIN (DOXORUBICIN) [Suspect]
     Indication: CHEMOTHERAPY
  5. VINCRISTINE [Suspect]
     Indication: CHEMOTHERAPY

REACTIONS (12)
  - ABDOMINAL ADHESIONS [None]
  - ABDOMINAL PAIN [None]
  - BACTERIAL INFECTION [None]
  - DRUG TOXICITY [None]
  - FUNGAL INFECTION [None]
  - HOT FLUSH [None]
  - INSOMNIA [None]
  - NIGHT SWEATS [None]
  - OVARIAN DISORDER [None]
  - PYREXIA [None]
  - VAGINAL ABSCESS [None]
  - VAGINAL OBSTRUCTION [None]
